FAERS Safety Report 9721165 (Version 2)
Quarter: 2013Q4

REPORT INFORMATION
  Report Type: Spontaneous
  Country: GB (occurrence: GB)
  Receive Date: 20131129
  Receipt Date: 20131129
  Transmission Date: 20140711
  Serious: Yes (Hospitalization)
  Sender: FDA-Public Use
  Company Number: GB-ABBVIE-13X-167-1069845-00

PATIENT
  Age: 51 Year
  Sex: Female

DRUGS (2)
  1. CLARITHROMYCIN [Suspect]
     Indication: LOCALISED INFECTION
     Route: 048
     Dates: start: 20130228, end: 20130303
  2. CARBAMAZEPINE [Suspect]
     Indication: EPILEPSY
     Dosage: THE PATIENT HAS BEEN TAKING LONG TERM,600MG MORNING AND 400MG EVENING(DAILY:1000MG)
     Route: 048

REACTIONS (4)
  - Gait disturbance [Recovered/Resolved]
  - Toxicity to various agents [Recovered/Resolved]
  - Paraesthesia [Recovered/Resolved]
  - Nausea [Recovered/Resolved]
